FAERS Safety Report 11543812 (Version 1)
Quarter: 2015Q3

REPORT INFORMATION
  Report Type: Spontaneous
  Country: US (occurrence: US)
  Receive Date: 20150924
  Receipt Date: 20150924
  Transmission Date: 20151125
  Serious: No
  Sender: FDA-Public Use
  Company Number: PHEH2015US010472

PATIENT
  Sex: Female

DRUGS (1)
  1. AMTURNIDE [Suspect]
     Active Substance: ALISKIREN HEMIFUMARATE\AMLODIPINE BESYLATE\HYDROCHLOROTHIAZIDE
     Indication: BLOOD PRESSURE ABNORMAL
     Dosage: 1 DF, (150 ALIS, 5 AMLO AND 12.5 HCTZ)
     Route: 065

REACTIONS (1)
  - Pruritus [Unknown]
